FAERS Safety Report 10545732 (Version 2)
Quarter: 2015Q2

REPORT INFORMATION
  Report Type: Spontaneous
  Country: US (occurrence: US)
  Receive Date: 20141027
  Receipt Date: 20150427
  Transmission Date: 20150821
  Serious: Yes (Other)
  Sender: FDA-Public Use
  Company Number: US-ASTELLAS-2014US014331

PATIENT
  Age: 61 Year
  Sex: Male

DRUGS (1)
  1. LEXISCAN [Suspect]
     Active Substance: REGADENOSON
     Indication: SCAN MYOCARDIAL PERFUSION
     Dosage: UNK UNK, UNKNOWN FREQ.
     Route: 042
     Dates: start: 20140610

REACTIONS (9)
  - Bradycardia [Recovered/Resolved]
  - Dizziness [Unknown]
  - Chest pain [Unknown]
  - Discomfort [Unknown]
  - Hyperhidrosis [Unknown]
  - Hypotension [Unknown]
  - Restlessness [Unknown]
  - Nausea [Unknown]
  - Dyspnoea [Unknown]

NARRATIVE: CASE EVENT DATE: 20140610
